FAERS Safety Report 20131717 (Version 1)
Quarter: 2021Q4

REPORT INFORMATION
  Report Type: Spontaneous
  Country: FR (occurrence: FR)
  Receive Date: 20211130
  Receipt Date: 20211130
  Transmission Date: 20220303
  Serious: Yes (Other)
  Sender: FDA-Public Use
  Company Number: None

PATIENT
  Age: 67 Year
  Sex: Male
  Weight: 81.8 kg

DRUGS (8)
  1. BISOPROLOL [Suspect]
     Active Substance: BISOPROLOL
     Indication: Cardiac failure
     Dosage: 2.5 MILLIGRAM, QD
     Route: 048
  2. DIGOXIN [Suspect]
     Active Substance: DIGOXIN
     Indication: Arrhythmia
     Dosage: 0.13 MILLIGRAM, QD
     Route: 048
     Dates: end: 20210830
  3. INSULIN GLARGINE [Concomitant]
     Active Substance: INSULIN GLARGINE
     Dosage: 25 INTERNATIONAL UNIT, QD
     Route: 058
  4. LACTULOSE [Concomitant]
     Active Substance: LACTULOSE
     Dosage: 20 GRAM, QD
     Route: 048
  5. FUROSEMIDE [Concomitant]
     Active Substance: FUROSEMIDE
     Dosage: 375 MILLIGRAM, QD
     Route: 048
     Dates: end: 20210830
  6. ALLOPURINOL [Concomitant]
     Active Substance: ALLOPURINOL
     Dosage: 100 MILLIGRAM, QD
     Route: 048
     Dates: start: 20210428, end: 20210830
  7. ACETAMINOPHEN [Concomitant]
     Active Substance: ACETAMINOPHEN
     Dosage: 1 GRAM, PRN
     Route: 048
  8. LANSOPRAZOLE [Concomitant]
     Active Substance: LANSOPRAZOLE
     Dosage: 30 MILLIGRAM, QD
     Route: 058

REACTIONS (2)
  - Sinus bradycardia [Recovering/Resolving]
  - Cardioactive drug level increased [Recovering/Resolving]

NARRATIVE: CASE EVENT DATE: 20210901
